FAERS Safety Report 7432232-2 (Version None)
Quarter: 2011Q2

REPORT INFORMATION
  Report Type: 
  Country: None (occurrence: None)
  Receive Date: 20110422
  Receipt Date: 20110406
  Transmission Date: 20111010
  Serious: No
  Sender: FDA-Public Use
  Company Number: US-B.I. PHARMACEUTICALS,INC./RIDGEFIELD-2011-BP-10296BP

PATIENT
  Sex: Male

DRUGS (1)
  1. PRADAXA [Suspect]
     Dates: start: 20110411

REACTIONS (2)
  - GASTROOESOPHAGEAL REFLUX DISEASE [None]
  - DYSPHAGIA [None]
